FAERS Safety Report 11888235 (Version 1)
Quarter: 2016Q1

REPORT INFORMATION
  Report Type: Spontaneous
  Country: US (occurrence: None)
  Receive Date: 20160104
  Receipt Date: 20160104
  Transmission Date: 20160526
  Serious: No
  Sender: FDA-Public Use
  Company Number: None

PATIENT
  Age: 72 Year
  Sex: Male

DRUGS (11)
  1. METOPROLOL. [Concomitant]
     Active Substance: METOPROLOL
  2. BUPROPN HCL [Concomitant]
     Active Substance: BUPROPION HYDROCHLORIDE
  3. ZOLPIDEM [Concomitant]
     Active Substance: ZOLPIDEM\ZOLPIDEM TARTRATE
  4. LOSARTAN. [Concomitant]
     Active Substance: LOSARTAN
  5. ONDANSETRON [Concomitant]
     Active Substance: ONDANSETRON
  6. TAMSULOSIN [Concomitant]
     Active Substance: TAMSULOSIN
  7. DIAZEPAM. [Concomitant]
     Active Substance: DIAZEPAM
  8. LANTUS [Concomitant]
     Active Substance: INSULIN GLARGINE
  9. GLIPIZIDE. [Concomitant]
     Active Substance: GLIPIZIDE
  10. AFINITOR [Suspect]
     Active Substance: EVEROLIMUS
     Indication: HEPATIC CANCER
     Route: 048
     Dates: start: 20151210
  11. NORTRIPTYLIN [Concomitant]
     Active Substance: NORTRIPTYLINE

REACTIONS (1)
  - Stomatitis [None]

NARRATIVE: CASE EVENT DATE: 201512
